FAERS Safety Report 6719126-2 (Version None)
Quarter: 2010Q2

REPORT INFORMATION
  Report Type: 
  Country: None (occurrence: None)
  Receive Date: 20100510
  Receipt Date: 20100510
  Transmission Date: 20101027
  Serious: No
  Sender: FDA-Public Use
  Company Number: None

PATIENT
  Age: 53 Year
  Sex: Female
  Weight: 51.7101 kg

DRUGS (3)
  1. METHOHEXITAL 10 MG/CC [Suspect]
     Indication: GENERAL ANAESTHESIA
     Dosage: 60 MG IV
     Route: 042
     Dates: start: 20100415
  2. GLYCOPYROLLATE [Concomitant]
  3. SUCCINYLCHOLINE [Concomitant]

REACTIONS (3)
  - COMA [None]
  - MUSCLE TWITCHING [None]
  - UNRESPONSIVE TO STIMULI [None]
